FAERS Safety Report 6600926-4 (Version None)
Quarter: 2010Q1

REPORT INFORMATION
  Report Type: 
  Country: None (occurrence: None)
  Receive Date: 20100224
  Receipt Date: 20100224
  Transmission Date: 20100710
  Serious: No
  Sender: FDA-Public Use
  Company Number: None

PATIENT
  Sex: Male
  Weight: 79.3795 kg

DRUGS (1)
  1. ACYCLOVIR [Suspect]
     Indication: HERPES VIRUS INFECTION
     Dosage: 200MG CAP 2 CAPS TWICE A DAY
     Dates: start: 20091027

REACTIONS (2)
  - BLOOD URINE PRESENT [None]
  - DYSURIA [None]
